FAERS Safety Report 10028985 (Version 2)
Quarter: 2014Q1

REPORT INFORMATION
  Report Type: Spontaneous
  Country: US (occurrence: US)
  Receive Date: 20140321
  Receipt Date: 20140321
  Transmission Date: 20141002
  Serious: Yes (Other)
  Sender: FDA-Public Use
  Company Number: CHPA2014US003457

PATIENT
  Sex: Male

DRUGS (1)
  1. VOLTAREN GEL [Suspect]
     Route: 061

REACTIONS (2)
  - Local swelling [Recovering/Resolving]
  - Arthralgia [Recovering/Resolving]
